FAERS Safety Report 6609909-1 (Version None)
Quarter: 2010Q1

REPORT INFORMATION
  Report Type: 
  Country: None (occurrence: None)
  Receive Date: 20100302
  Receipt Date: 20100225
  Transmission Date: 20100710
  Serious: Yes (Death, Hospitalization, Other)
  Sender: FDA-Public Use
  Company Number: PHHY2010BR10937

PATIENT
  Sex: Male

DRUGS (2)
  1. FORASEQ [Suspect]
     Indication: BRONCHITIS
     Dosage: ONCE, TWICE OR THRICE A DAY, DEPENDING ON THE NECESSITY
  2. FORASEQ [Suspect]
     Indication: EMPHYSEMA

REACTIONS (3)
  - DEATH [None]
  - DYSPNOEA [None]
  - ISCHAEMIA [None]
